FAERS Safety Report 9940978 (Version 2)
Quarter: 2014Q1

REPORT INFORMATION
  Report Type: Spontaneous
  Country: US (occurrence: US)
  Receive Date: 20140303
  Receipt Date: 20140331
  Transmission Date: 20141002
  Serious: No
  Sender: FDA-Public Use
  Company Number: US-PFIZER INC-2014057329

PATIENT
  Sex: Male

DRUGS (2)
  1. LIPITOR [Suspect]
     Dosage: 80 MG, UNK
  2. LIPTRUZET [Suspect]
     Dosage: UNK

REACTIONS (2)
  - Accidental overdose [Unknown]
  - Fatigue [Unknown]
